FAERS Safety Report 8208744-0 (Version None)
Quarter: 2012Q1

REPORT INFORMATION
  Report Type: 
  Country: None (occurrence: None)
  Receive Date: 20120314
  Receipt Date: 20120309
  Transmission Date: 20120608
  Serious: Yes (Hospitalization)
  Sender: FDA-Public Use
  Company Number: FR-PFIZER INC-2012063040

PATIENT
  Age: 54 Year
  Sex: Female

DRUGS (3)
  1. TENORMIN [Concomitant]
     Indication: HYPERTENSION
     Route: 048
  2. ATORVASTATIN [Suspect]
     Indication: HYPERCHOLESTEROLAEMIA
     Dosage: 1 DF, 1X/DAY
     Route: 048
     Dates: start: 20090101, end: 20111009
  3. PAROXETINE [Concomitant]
     Indication: DEPRESSION
     Route: 048

REACTIONS (2)
  - THROMBOCYTOPENIA [None]
  - PANCREATITIS ACUTE [None]
